FAERS Safety Report 12686827 (Version 1)
Quarter: 2016Q3

REPORT INFORMATION
  Report Type: Spontaneous
  Country: US (occurrence: US)
  Receive Date: 20160825
  Receipt Date: 20160825
  Transmission Date: 20161109
  Serious: No
  Sender: FDA-Public Use
  Company Number: US-JAZZ-2016-US-007291

PATIENT
  Sex: Female

DRUGS (36)
  1. CELEBREX [Concomitant]
     Active Substance: CELECOXIB
  2. XYREM [Suspect]
     Active Substance: SODIUM OXYBATE
     Indication: NARCOLEPSY
     Dosage: 2.25 G, BID
     Route: 048
     Dates: start: 201101, end: 201101
  3. TRIAMCINOLONE [Concomitant]
     Active Substance: TRIAMCINOLONE
  4. SEASONIQUE [Concomitant]
     Active Substance: ETHINYL ESTRADIOL\LEVONORGESTREL
  5. XYREM [Suspect]
     Active Substance: SODIUM OXYBATE
     Dosage: 4.5 G, BID
     Route: 048
     Dates: start: 201208, end: 2012
  6. XYREM [Suspect]
     Active Substance: SODIUM OXYBATE
     Dosage: DOSE ADJUSTMENTS
     Route: 048
     Dates: start: 2013, end: 2013
  7. DEPLIN [Concomitant]
     Active Substance: LEVOMEFOLATE CALCIUM
  8. MORPHINE SULFATE ER [Concomitant]
     Active Substance: MORPHINE SULFATE
  9. NAPROXEN DR [Concomitant]
  10. OXYCODONE AND ACETAMINOPHEN [Concomitant]
     Active Substance: ACETAMINOPHEN\OXYCODONE HYDROCHLORIDE
  11. XYREM [Suspect]
     Active Substance: SODIUM OXYBATE
     Dosage: 4.5 G, BID
     Route: 048
     Dates: start: 201102, end: 2012
  12. DUONEB [Concomitant]
     Active Substance: ALBUTEROL SULFATE\IPRATROPIUM BROMIDE
  13. VISTARIL [Concomitant]
     Active Substance: HYDROXYZINE PAMOATE
  14. ZONEGRAN [Concomitant]
     Active Substance: ZONISAMIDE
  15. ADDERALL [Concomitant]
     Active Substance: AMPHETAMINE ASPARTATE\AMPHETAMINE SULFATE\DEXTROAMPHETAMINE SACCHARATE\DEXTROAMPHETAMINE SULFATE
  16. METFORMIN HCL [Concomitant]
     Active Substance: METFORMIN HYDROCHLORIDE
  17. XANAX [Concomitant]
     Active Substance: ALPRAZOLAM
  18. XYREM [Suspect]
     Active Substance: SODIUM OXYBATE
     Dosage: DOSE ADJUSTMENTS
     Route: 048
     Dates: start: 2011, end: 2011
  19. SOMA [Concomitant]
     Active Substance: CARISOPRODOL
  20. ALPRAZOLAM. [Concomitant]
     Active Substance: ALPRAZOLAM
  21. CLONAZEPAM. [Concomitant]
     Active Substance: CLONAZEPAM
  22. PERCOCET [Concomitant]
     Active Substance: ACETAMINOPHEN\OXYCODONE HYDROCHLORIDE
  23. PROVENTIL HFA [Concomitant]
     Active Substance: ALBUTEROL SULFATE
  24. TIROSINT [Concomitant]
     Active Substance: LEVOTHYROXINE SODIUM
  25. XYREM [Suspect]
     Active Substance: SODIUM OXYBATE
     Dosage: 2.25 G, BID
     Route: 048
     Dates: start: 201306, end: 201306
  26. ASMANEX [Concomitant]
     Active Substance: MOMETASONE FUROATE
  27. PREDNISONE. [Concomitant]
     Active Substance: PREDNISONE
  28. LEVOTHYROXINE. [Concomitant]
     Active Substance: LEVOTHYROXINE
  29. TRIAZOLAM. [Concomitant]
     Active Substance: TRIAZOLAM
  30. ZANAFLEX [Concomitant]
     Active Substance: TIZANIDINE HYDROCHLORIDE
  31. TRAMADOL HCL ER [Concomitant]
  32. XYREM [Suspect]
     Active Substance: SODIUM OXYBATE
     Dosage: 4.5 G, BID
     Route: 048
     Dates: start: 201307
  33. PROAIR HFA [Concomitant]
     Active Substance: ALBUTEROL SULFATE
  34. CYMBALTA [Concomitant]
     Active Substance: DULOXETINE HYDROCHLORIDE
  35. ZOHYDRO [Concomitant]
     Active Substance: HYDROCODONE BITARTRATE
  36. ZONISAMIDE. [Concomitant]
     Active Substance: ZONISAMIDE

REACTIONS (1)
  - Intentional product misuse [Unknown]
